FAERS Safety Report 14920121 (Version 5)
Quarter: 2018Q3

REPORT INFORMATION
  Report Type: Spontaneous
  Country: CA (occurrence: CA)
  Receive Date: 20180521
  Receipt Date: 20180913
  Transmission Date: 20181010
  Serious: Yes (Hospitalization, Other)
  Sender: FDA-Public Use
  Company Number: CA-CELLTRION INC.-2017CA015497

PATIENT

DRUGS (9)
  1. INFLECTRA [Suspect]
     Active Substance: INFLIXIMAB-DYYB
     Indication: RHEUMATOID ARTHRITIS
     Dosage: 300 MG, /3 VIALS OF 100 MG EVERY 0, 2, 6 WEEKS, THEN EVERY 8 WEEKS
     Route: 042
     Dates: start: 20180202
  2. INFLECTRA [Suspect]
     Active Substance: INFLIXIMAB-DYYB
     Dosage: 300 MG, CYCLIC ( EVERY 0, 2, 6 WEEKS, THEN EVERY 8 WEEKS
     Route: 065
     Dates: start: 20180316
  3. INFLECTRA [Suspect]
     Active Substance: INFLIXIMAB-DYYB
     Dosage: 300 MG, CYCLIC ( EVERY 0, 2, 6 WEEKS, THEN EVERY 8 WEEKS
     Route: 065
     Dates: start: 20180511
  4. HYDROXYCHLOROQUINE [Concomitant]
     Active Substance: HYDROXYCHLOROQUINE
     Dosage: UNK
     Dates: start: 2011
  5. INFLECTRA [Suspect]
     Active Substance: INFLIXIMAB-DYYB
     Dosage: 300 MG, CYCLIC ( EVERY 0, 2, 6 WEEKS, THEN EVERY 8 WEEKS
     Route: 065
     Dates: start: 20180706
  6. INFLECTRA [Suspect]
     Active Substance: INFLIXIMAB-DYYB
     Dosage: 300 MG, CYCLIC ( EVERY 0, 2, 6 WEEKS, THEN EVERY 8 WEEKS
     Route: 065
     Dates: start: 20180831
  7. METHOTREXATE. [Concomitant]
     Active Substance: METHOTREXATE
     Dosage: UNK
     Dates: start: 2011
  8. FOLIC ACID. [Concomitant]
     Active Substance: FOLIC ACID
     Dosage: UNK
  9. INFLECTRA [Suspect]
     Active Substance: INFLIXIMAB-DYYB
     Dosage: 300 MG, /3 VIALS OF 100 MG EVERY 0, 2, 6 WEEKS, THEN EVERY 8 WEEKS
     Route: 042
     Dates: start: 20180216

REACTIONS (12)
  - Erythema [Recovering/Resolving]
  - Product use issue [Unknown]
  - Rash macular [Unknown]
  - Fall [Unknown]
  - Pain [Recovered/Resolved]
  - Weight increased [Unknown]
  - Cough [Not Recovered/Not Resolved]
  - Condition aggravated [Unknown]
  - Blood pressure fluctuation [Unknown]
  - Drug hypersensitivity [Unknown]
  - Secretion discharge [Unknown]
  - Localised oedema [Recovered/Resolved]

NARRATIVE: CASE EVENT DATE: 20180316
